FAERS Safety Report 8167388-X (Version None)
Quarter: 2012Q1

REPORT INFORMATION
  Report Type: 
  Country: None (occurrence: None)
  Receive Date: 20120221
  Receipt Date: 20120211
  Transmission Date: 20120608
  Serious: Yes (Other)
  Sender: FDA-Public Use
  Company Number: 1193389

PATIENT
  Age: 78 Year
  Sex: Female

DRUGS (2)
  1. VANCOMYCIN HYDROCHLORIDE [Concomitant]
     Indication: PNEUMONIA
  2. PIPERACILLIN AND TAZOBACTAM [Suspect]
     Indication: PNEUMONIA

REACTIONS (2)
  - EOSINOPHILIC CELLULITIS [None]
  - LINEAR IGA DISEASE [None]
